FAERS Safety Report 4436007-8 (Version None)
Quarter: 2004Q3

REPORT INFORMATION
  Report Type: 
  Country: None (occurrence: None)
  Receive Date: 20040726
  Receipt Date: 20040520
  Transmission Date: 20050211
  Serious: No
  Sender: FDA-Public Use
  Company Number: USA040567512

PATIENT
  Age: 70 Year
  Sex: Female

DRUGS (4)
  1. FORTEO [Suspect]
     Dates: start: 20040506
  2. CALCIUM [Concomitant]
  3. OCUVITE [Concomitant]
  4. ESTROGEN NOS [Concomitant]

REACTIONS (2)
  - DIZZINESS [None]
  - MUSCLE CRAMP [None]
